FAERS Safety Report 7654676-6 (Version None)
Quarter: 2011Q3

REPORT INFORMATION
  Report Type: 
  Country: None (occurrence: None)
  Receive Date: 20110804
  Receipt Date: 20110725
  Transmission Date: 20111222
  Serious: Yes (Other)
  Sender: FDA-Public Use
  Company Number: IN-BIOGENIDEC-2011BI027633

PATIENT
  Age: 24 Year
  Sex: Female
  Weight: 59 kg

DRUGS (4)
  1. LEVETIRACETAM [Concomitant]
     Route: 042
     Dates: start: 20110721
  2. TYSABRI [Suspect]
     Indication: SECONDARY PROGRESSIVE MULTIPLE SCLEROSIS
     Route: 042
     Dates: start: 20110721
  3. LEVETIRACETAM [Concomitant]
     Indication: CONVULSION
     Route: 048
     Dates: start: 20101213, end: 20110721
  4. QUETIAPINE [Concomitant]
     Indication: MENTAL DISORDER
     Route: 048
     Dates: start: 20101101

REACTIONS (3)
  - HEADACHE [None]
  - PARTIAL SEIZURES WITH SECONDARY GENERALISATION [None]
  - VOMITING [None]
